FAERS Safety Report 15653153 (Version 3)
Quarter: 2019Q4

REPORT INFORMATION
  Report Type: Spontaneous
  Country: US (occurrence: US)
  Receive Date: 20181123
  Receipt Date: 20191121
  Transmission Date: 20200122
  Serious: No
  Sender: FDA-Public Use
  Company Number: US-NOVOPROD-618019

PATIENT
  Age: 83 Year
  Sex: Female

DRUGS (2)
  1. LEVEMIR [Suspect]
     Active Substance: INSULIN DETEMIR
     Indication: TYPE 2 DIABETES MELLITUS
     Dosage: 20 U, QD
     Route: 058
     Dates: start: 2016
  2. NOVOLOG [Suspect]
     Active Substance: INSULIN ASPART
     Indication: TYPE 2 DIABETES MELLITUS
     Dosage: 10 UNITS PER MEAL
     Route: 058
     Dates: start: 2016

REACTIONS (2)
  - Product dispensing error [Not Recovered/Not Resolved]
  - Visual impairment [Not Recovered/Not Resolved]

NARRATIVE: CASE EVENT DATE: 201802
